FAERS Safety Report 8198963-4 (Version None)
Quarter: 2012Q1

REPORT INFORMATION
  Report Type: 
  Country: None (occurrence: None)
  Receive Date: 20120309
  Receipt Date: 20120308
  Transmission Date: 20120608
  Serious: No
  Sender: FDA-Public Use
  Company Number: US-JNJFOC-20120211214

PATIENT
  Sex: Female
  Weight: 76.2 kg

DRUGS (8)
  1. DURAGESIC-100 [Suspect]
     Route: 062
  2. NEURONTIN [Concomitant]
     Indication: NEURALGIA
     Route: 048
     Dates: start: 19980101
  3. SYNTHROID [Concomitant]
     Indication: THYROID DISORDER
     Route: 048
     Dates: start: 19940101
  4. PRILOSEC [Concomitant]
     Indication: GASTRIC DISORDER
     Route: 048
     Dates: start: 19980101
  5. DURAGESIC-100 [Suspect]
     Indication: PAIN
     Route: 062
     Dates: start: 20120101
  6. ESTRACE [Concomitant]
     Indication: HORMONE LEVEL ABNORMAL
     Route: 048
     Dates: start: 19940101
  7. DILANTIN [Concomitant]
     Indication: CONVULSION
     Route: 048
     Dates: start: 19980101
  8. TRAMADOL HCL [Concomitant]
     Indication: PAIN
     Route: 048
     Dates: start: 19980101

REACTIONS (6)
  - INSOMNIA [None]
  - PRODUCT QUALITY ISSUE [None]
  - GASTRIC DISORDER [None]
  - WRONG TECHNIQUE IN DRUG USAGE PROCESS [None]
  - FEELING ABNORMAL [None]
  - BREAKTHROUGH PAIN [None]
